FAERS Safety Report 7974069-1 (Version None)
Quarter: 2011Q4

REPORT INFORMATION
  Report Type: 
  Country: None (occurrence: None)
  Receive Date: 20111213
  Receipt Date: 20110922
  Transmission Date: 20120403
  Serious: Yes (Hospitalization, Other)
  Sender: FDA-Public Use
  Company Number: US-ROCHE-1020895

PATIENT
  Sex: Female
  Weight: 56.75 kg

DRUGS (1)
  1. XELODA [Suspect]
     Indication: BREAST CANCER METASTATIC
     Dosage: 500 MG 4 TABS
     Route: 048
     Dates: start: 20110726

REACTIONS (10)
  - VOMITING [None]
  - WEIGHT DECREASED [None]
  - ELECTROLYTE IMBALANCE [None]
  - RASH [None]
  - PYREXIA [None]
  - SKIN DISORDER [None]
  - DIARRHOEA [None]
  - ERYTHEMA [None]
  - DEHYDRATION [None]
  - BLOOD POTASSIUM DECREASED [None]
